FAERS Safety Report 4919576-0 (Version None)
Quarter: 2006Q1

REPORT INFORMATION
  Report Type: 
  Country: None (occurrence: None)
  Receive Date: 20060222
  Receipt Date: 20051104
  Transmission Date: 20060701
  Serious: Yes (Other)
  Sender: FDA-Public Use
  Company Number: US-MERCK-0511USA00764

PATIENT
  Age: 63 Year
  Sex: Female
  Weight: 80 kg

DRUGS (9)
  1. VIOXX [Suspect]
     Indication: ARTHRITIS
     Route: 048
     Dates: start: 20020423, end: 20040901
  2. VIOXX [Suspect]
     Indication: ARTHRALGIA
     Route: 048
     Dates: start: 20020423, end: 20040901
  3. ULTRAM [Concomitant]
     Indication: ARTHRITIS
     Route: 065
     Dates: start: 20030801
  4. HYDROCODONE BITARTRATE [Concomitant]
     Indication: ARTHRITIS
     Route: 065
     Dates: start: 20010501
  5. ATENOLOL [Concomitant]
     Indication: HYPERTENSION
     Route: 065
     Dates: start: 20031201, end: 20040401
  6. AVALIDE [Concomitant]
     Indication: HYPERTENSION
     Route: 065
     Dates: start: 20030801, end: 20040701
  7. PAXIL [Concomitant]
     Indication: DEPRESSION
     Route: 065
     Dates: start: 20030601
  8. LEXAPRO [Concomitant]
     Indication: DEPRESSION
     Route: 065
     Dates: start: 20030801, end: 20040401
  9. AMITRIPTYLINE PAMOATE [Concomitant]
     Indication: DEPRESSION
     Route: 065
     Dates: start: 20030901, end: 20040301

REACTIONS (7)
  - CARPAL TUNNEL SYNDROME [None]
  - GASTROOESOPHAGEAL REFLUX DISEASE [None]
  - OESOPHAGEAL DISORDER [None]
  - SLEEP APNOEA SYNDROME [None]
  - THROMBOTIC STROKE [None]
  - TRANSIENT ISCHAEMIC ATTACK [None]
  - VAGINAL CYST [None]
